FAERS Safety Report 6528934-2 (Version None)
Quarter: 2010Q1

REPORT INFORMATION
  Report Type: 
  Country: None (occurrence: None)
  Receive Date: 20100106
  Receipt Date: 20091221
  Transmission Date: 20100710
  Serious: Yes (Other)
  Sender: FDA-Public Use
  Company Number: US-SANOFI-AVENTIS-2009SA008217

PATIENT
  Age: 83 Year
  Sex: Male

DRUGS (1)
  1. ELIGARD [Suspect]
     Indication: PROSTATE CANCER
     Route: 058
     Dates: start: 20090930, end: 20090930

REACTIONS (4)
  - DRUG INEFFECTIVE [None]
  - INJECTION SITE NECROSIS [None]
  - INJECTION SITE REACTION [None]
  - PROSTATIC SPECIFIC ANTIGEN ABNORMAL [None]
